FAERS Safety Report 9269075 (Version 1)
Quarter: 2013Q2

REPORT INFORMATION
  Report Type: Spontaneous
  Country: DE (occurrence: DE)
  Receive Date: 20130503
  Receipt Date: 20130503
  Transmission Date: 20140414
  Serious: Yes (Hospitalization)
  Sender: FDA-Public Use
  Company Number: DE-RANBAXY-2013RR-68407

PATIENT
  Age: 82 Year
  Sex: Female
  Weight: 67 kg

DRUGS (10)
  1. METFORMIN [Suspect]
     Indication: TYPE 2 DIABETES MELLITUS
     Dosage: 500 MG, (2-2-1)
     Route: 048
     Dates: start: 20100521
  2. METFORMIN [Suspect]
     Dosage: 500 MG, BID
     Route: 048
     Dates: end: 20120521
  3. ASS 100 [Concomitant]
     Indication: PRODUCT USED FOR UNKNOWN INDICATION
     Dosage: 100 MG, QD
     Route: 048
  4. CARVEDILOL 6.25 MG [Concomitant]
     Indication: PRODUCT USED FOR UNKNOWN INDICATION
     Dosage: 6.25 MG, BID
     Route: 048
  5. AMLODIPIN [Concomitant]
     Indication: PRODUCT USED FOR UNKNOWN INDICATION
     Dosage: 10 MG (1-0-0.5)
     Route: 048
  6. TORASEMID [Concomitant]
     Indication: PRODUCT USED FOR UNKNOWN INDICATION
     Dosage: 10 MG (1-0.5-0)
     Route: 048
  7. RAMIPRIL 5/12.5 [Concomitant]
     Indication: PRODUCT USED FOR UNKNOWN INDICATION
     Dosage: 10 MG (1-0-1)
     Route: 048
  8. CLONIDIN [Concomitant]
     Indication: PRODUCT USED FOR UNKNOWN INDICATION
     Dosage: 10 MG (1-0-1)
     Route: 048
  9. CLONIDIN [Concomitant]
     Dosage: 75 MG (1-0-1)
     Route: 048
  10. JANUVIA [Concomitant]
     Indication: PRODUCT USED FOR UNKNOWN INDICATION
     Dosage: 100 MG (1-0-0)
     Route: 048
     Dates: start: 20120526

REACTIONS (2)
  - Lactic acidosis [Recovered/Resolved]
  - Renal failure acute [Recovered/Resolved]
